FAERS Safety Report 8824388 (Version 2)
Quarter: 2013Q1

REPORT INFORMATION
  Report Type: Spontaneous
  Country: US (occurrence: US)
  Receive Date: 20121004
  Receipt Date: 20130321
  Transmission Date: 20140127
  Serious: No
  Sender: FDA-Public Use
  Company Number: US-009507513-1208USA002848

PATIENT
  Sex: Female

DRUGS (2)
  1. NUVARING [Suspect]
     Indication: CONTRACEPTION
  2. HORMONAL CONTRACEPTIVES (UNSPECIFIED) [Concomitant]

REACTIONS (4)
  - Coital bleeding [Unknown]
  - Cervicitis [Unknown]
  - Weight increased [Unknown]
  - Metrorrhagia [Unknown]
